FAERS Safety Report 6170947-7 (Version None)
Quarter: 2009Q2

REPORT INFORMATION
  Report Type: 
  Country: None (occurrence: None)
  Receive Date: 20090429
  Receipt Date: 20090417
  Transmission Date: 20091009
  Serious: Yes (Death, Other)
  Sender: FDA-Public Use
  Company Number: DE-CELGENEUS-062-CCAZA-09042155

PATIENT

DRUGS (2)
  1. AZACITIDINE [Suspect]
     Route: 065
  2. VALPROIC ACID [Suspect]
     Dosage: ACHEIVE AND MAINTAIN SERUM LEVEL 80-110UG/ML
     Route: 048

REACTIONS (5)
  - BONE MARROW FAILURE [None]
  - HAEMOLYSIS [None]
  - NERVOUS SYSTEM DISORDER [None]
  - PNEUMONIA [None]
  - RASH [None]
